FAERS Safety Report 23319693 (Version 1)
Quarter: 2023Q4

REPORT INFORMATION
  Report Type: Spontaneous
  Country: US (occurrence: US)
  Receive Date: 20231220
  Receipt Date: 20231220
  Transmission Date: 20240110
  Serious: No
  Sender: FDA-Public Use
  Company Number: US-ALVOGEN-2023092186

PATIENT
  Sex: Female

DRUGS (14)
  1. LORAZEPAM [Suspect]
     Active Substance: LORAZEPAM
     Indication: Mast cell activation syndrome
  2. HYOSCYAMINE [Suspect]
     Active Substance: HYOSCYAMINE
     Indication: Gastrointestinal disorder
     Dosage: ABOUT A MONTH AGO
     Route: 048
  3. HYOSCYAMINE [Suspect]
     Active Substance: HYOSCYAMINE
     Indication: Gastrointestinal disorder
     Dosage: ABOUT A WEEK AGO
     Route: 048
  4. HYOSCYAMINE [Suspect]
     Active Substance: HYOSCYAMINE
     Indication: Gastrointestinal disorder
     Route: 048
  5. HYLO [Concomitant]
     Indication: Corneal abrasion
     Dosage: 3-6 TIMES A DAY
  6. KETOTIFEN [Concomitant]
     Active Substance: KETOTIFEN
     Indication: Mast cell activation syndrome
  7. XYZAL [Concomitant]
     Active Substance: LEVOCETIRIZINE DIHYDROCHLORIDE
     Indication: Mast cell activation syndrome
  8. OMEGA-3 ACIDS [Concomitant]
     Active Substance: OMEGA-3 FATTY ACIDS
     Indication: Mast cell activation syndrome
  9. Lypo-Spheric Vitamin C [Concomitant]
     Indication: Mast cell activation syndrome
     Dosage: ESSENTIAL PHOSPHOLIPIDS ONE PACKAGE DAILY
  10. ALBUTEROL SULFATE [Concomitant]
     Active Substance: ALBUTEROL SULFATE
     Indication: Asthma
     Dosage: WHEN NEEDED
  11. ZINC [Concomitant]
     Active Substance: PYRITHIONE ZINC\ZINC\ZINC CHLORIDE
     Indication: Product used for unknown indication
     Dosage: 25 MG INCLUDES 3 MG B6 ONCE A DAY.
  12. ZYRTEC [Concomitant]
     Active Substance: CETIRIZINE HYDROCHLORIDE
     Indication: Product used for unknown indication
     Dosage: FOR ORAL RINSE.
  13. Osteocare calcium [Concomitant]
     Indication: Bone density abnormal
  14. NP THYROID [Concomitant]
     Active Substance: LEVOTHYROXINE\LIOTHYRONINE
     Indication: Hypothyroidism

REACTIONS (3)
  - Dry eye [Unknown]
  - Dry mouth [Unknown]
  - Off label use [Unknown]
